FAERS Safety Report 5553391-2 (Version None)
Quarter: 2007Q4

REPORT INFORMATION
  Report Type: 
  Country: None (occurrence: None)
  Receive Date: 20071213
  Receipt Date: 20071207
  Transmission Date: 20080405
  Serious: Yes (Hospitalization)
  Sender: FDA-Public Use
  Company Number: IT-WYE-G00712107

PATIENT
  Sex: Female

DRUGS (1)
  1. SIROLIMUS [Suspect]
     Indication: CONGENITAL CYSTIC KIDNEY DISEASE
     Route: 048
     Dates: start: 20071011, end: 20071123

REACTIONS (1)
  - ERYTHEMA NODOSUM [None]
